FAERS Safety Report 17865675 (Version 1)
Quarter: 2020Q2

REPORT INFORMATION
  Report Type: Report from Study
  Country: IT (occurrence: IT)
  Receive Date: 20200605
  Receipt Date: 20200605
  Transmission Date: 20200714
  Serious: Yes (Other)
  Sender: FDA-Public Use
  Company Number: IT-MYLANLABS-2020M1054150

PATIENT
  Age: 32 Year
  Sex: Male

DRUGS (5)
  1. KETOPROFEN. [Suspect]
     Active Substance: KETOPROFEN
     Indication: PULPITIS DENTAL
     Dosage: 80 MILLIGRAM, TOTAL
     Route: 048
     Dates: start: 20200407, end: 20200407
  2. EN [Concomitant]
     Active Substance: DELORAZEPAM
     Indication: MENTAL DISABILITY
     Route: 048
  3. SERENASE                           /00027401/ [Concomitant]
     Active Substance: HALOPERIDOL
     Indication: MENTAL DISABILITY
     Dosage: 2 MILLIGRAM
     Route: 048
  4. AUGMENTIN [Suspect]
     Active Substance: AMOXICILLIN\CLAVULANATE POTASSIUM
     Indication: PULPITIS DENTAL
     Dosage: 1 DOSAGE FORM, QD
     Route: 048
     Dates: start: 20200408, end: 20200408
  5. DEPAKIN [Concomitant]
     Active Substance: VALPROATE SODIUM
     Indication: MENTAL DISABILITY
     Dosage: 2 DOSAGE FORM
     Route: 048

REACTIONS (5)
  - Nausea [Recovered/Resolved]
  - Rash erythematous [Recovered/Resolved]
  - Rash pruritic [Recovered/Resolved]
  - Rash [Recovered/Resolved]
  - Dyspnoea [Recovered/Resolved]

NARRATIVE: CASE EVENT DATE: 20200408
